FAERS Safety Report 13469334 (Version 1)
Quarter: 2017Q2

REPORT INFORMATION
  Report Type: Spontaneous
  Country: US (occurrence: US)
  Receive Date: 20170421
  Receipt Date: 20170421
  Transmission Date: 20170830
  Serious: Yes (Life-Threatening, Hospitalization, Other)
  Sender: FDA-Public Use
  Company Number: US-TARO-2017TAR00269

PATIENT
  Sex: Male

DRUGS (1)
  1. AMIODARONE HCL TABLET 200 MG [Suspect]
     Active Substance: AMIODARONE HYDROCHLORIDE
     Indication: ATRIAL FIBRILLATION
     Dosage: UNK
     Route: 048
     Dates: start: 201202, end: 201606

REACTIONS (17)
  - Restrictive pulmonary disease [Unknown]
  - Heart rate irregular [Unknown]
  - Fatigue [Unknown]
  - Anxiety [Unknown]
  - Diaphragmatic paralysis [Not Recovered/Not Resolved]
  - Off label use [Recovered/Resolved]
  - Thyroid function test abnormal [Not Recovered/Not Resolved]
  - Pulmonary oedema [Unknown]
  - Depression [Unknown]
  - Respiratory paralysis [Not Recovered/Not Resolved]
  - Pneumonia [Unknown]
  - Pulmonary fibrosis [Not Recovered/Not Resolved]
  - Chronic respiratory failure [Not Recovered/Not Resolved]
  - Asthenia [Unknown]
  - Hepatic enzyme increased [Unknown]
  - Pulmonary haemorrhage [Unknown]
  - Cardiac failure [Not Recovered/Not Resolved]

NARRATIVE: CASE EVENT DATE: 201606
